FAERS Safety Report 6948383-2 (Version None)
Quarter: 2010Q3

REPORT INFORMATION
  Report Type: 
  Country: None (occurrence: None)
  Receive Date: 20100828
  Receipt Date: 20100119
  Transmission Date: 20110219
  Serious: No
  Sender: FDA-Public Use
  Company Number: US-ABBOTT-09P-163-0589617-00

PATIENT
  Sex: Male
  Weight: 76.272 kg

DRUGS (6)
  1. NIASPAN [Suspect]
     Indication: BLOOD CHOLESTEROL INCREASED
     Route: 048
     Dates: start: 20091129
  2. ASPIRIN [Concomitant]
     Indication: PROPHYLAXIS
     Route: 048
  3. ASPIRIN [Concomitant]
     Indication: FLUSHING
  4. PHENOBARBITAL [Concomitant]
     Indication: CEREBRAL HAEMORRHAGE
  5. ELAVIL [Concomitant]
     Indication: CONVULSION
  6. UNKNOWN BLOOD PRESSURE MEDICATION [Concomitant]
     Indication: HYPERTENSION
     Route: 048

REACTIONS (3)
  - FLUSHING [None]
  - GENERALISED ERYTHEMA [None]
  - SKIN BURNING SENSATION [None]
